FAERS Safety Report 4848190-0 (Version None)
Quarter: 2005Q4

REPORT INFORMATION
  Report Type: 
  Country: None (occurrence: None)
  Receive Date: 20051208
  Receipt Date: 20051128
  Transmission Date: 20060501
  Serious: Yes (Other)
  Sender: FDA-Public Use
  Company Number: JP-BRISTOL-MYERS SQUIBB COMPANY-13198486

PATIENT
  Age: 66 Year
  Sex: Female

DRUGS (1)
  1. MAXIPIME [Suspect]
     Dates: start: 20020501, end: 20020601

REACTIONS (1)
  - LIVER DISORDER [None]
